FAERS Safety Report 7267202-0 (Version None)
Quarter: 2011Q1

REPORT INFORMATION
  Report Type: 
  Country: None (occurrence: None)
  Receive Date: 20110201
  Receipt Date: 20101109
  Transmission Date: 20110831
  Serious: Yes (Hospitalization, Other)
  Sender: FDA-Public Use
  Company Number: US-BAYER-201037646NA

PATIENT
  Sex: Female
  Weight: 81.633 kg

DRUGS (6)
  1. YAZ [Suspect]
     Indication: ACNE
  2. OCELLA [Suspect]
     Indication: ACNE
  3. MULTIVITAMIN PREPARATION + MINERAL SUPPLEMENT [Concomitant]
  4. UNCODEABLE ^UNCLASSIFIABLE^ [Concomitant]
  5. OVCON-35 [Concomitant]
  6. YASMIN [Suspect]
     Indication: ACNE
     Dosage: UNK
     Dates: start: 20060101

REACTIONS (5)
  - MULTIPLE INJURIES [None]
  - PULMONARY EMBOLISM [None]
  - PERICARDIAL EFFUSION [None]
  - COR PULMONALE ACUTE [None]
  - DYSPNOEA [None]
